FAERS Safety Report 7655382 (Version 2)
Quarter: 2020Q1

REPORT INFORMATION
  Report Type: Spontaneous
  Country: FR (occurrence: FR)
  Receive Date: 20101103
  Receipt Date: 20200131
  Transmission Date: 20200409
  Serious: Yes (Other)
  Sender: FDA-Public Use
  Company Number: GXKR2010FR12071

PATIENT
  Age: 40 Year
  Sex: Male

DRUGS (2)
  1. TRAMADOL. [Suspect]
     Active Substance: TRAMADOL
     Indication: DRUG ABUSE
     Dosage: ESCALATION UNTIL 500 MG/DAY
     Route: 065
  2. TRAMADOL. [Suspect]
     Active Substance: TRAMADOL
     Indication: BACK PAIN
     Dosage: 100 MG/DAY
     Route: 065

REACTIONS (14)
  - Chills [Unknown]
  - Drug abuse [Unknown]
  - Central nervous system stimulation [Unknown]
  - Myalgia [Unknown]
  - Dependence [Unknown]
  - Rhinorrhoea [Unknown]
  - Excessive eye blinking [Unknown]
  - Intentional overdose [Unknown]
  - Tic [Unknown]
  - Muscle contractions involuntary [Unknown]
  - Abdominal pain [Unknown]
  - Drug withdrawal syndrome [Unknown]
  - Insomnia [Unknown]
  - Drug tolerance [Unknown]
